FAERS Safety Report 5600681-0 (Version None)
Quarter: 2008Q1

REPORT INFORMATION
  Report Type: 
  Country: None (occurrence: None)
  Receive Date: 20080123
  Receipt Date: 20080115
  Transmission Date: 20080703
  Serious: Yes (Hospitalization)
  Sender: FDA-Public Use
  Company Number: JP-PFIZER INC-2007102586

PATIENT
  Sex: Male
  Weight: 79 kg

DRUGS (8)
  1. PREGABALIN [Suspect]
     Indication: POST HERPETIC NEURALGIA
     Route: 048
     Dates: start: 20070315, end: 20071127
  2. SULPIRIDE [Concomitant]
     Route: 048
     Dates: start: 20071120, end: 20071127
  3. AMLODIPINE BESYLATE [Concomitant]
     Route: 048
     Dates: start: 20041212, end: 20071127
  4. CANDESARTAN CILEXETIL [Concomitant]
     Route: 048
     Dates: start: 20040713, end: 20071127
  5. ALL OTHER THERAPEUTIC PRODUCTS [Concomitant]
     Dates: start: 20071001, end: 20071127
  6. TROPICAMIDE [Concomitant]
     Dates: start: 20071120, end: 20071120
  7. CANDESARTAN CILEXETIL [Concomitant]
     Route: 048
     Dates: start: 20040301, end: 20071127
  8. NORVASC [Concomitant]
     Route: 048
     Dates: start: 20040301, end: 20071127

REACTIONS (1)
  - GASTRODUODENAL ULCER [None]
